FAERS Safety Report 11720258 (Version 2)
Quarter: 2015Q4

REPORT INFORMATION
  Report Type: Spontaneous
  Country: SK (occurrence: SK)
  Receive Date: 20151110
  Receipt Date: 20151203
  Transmission Date: 20160304
  Serious: Yes (Other)
  Sender: FDA-Public Use
  Company Number: SK-TEVA-606956ISR

PATIENT
  Age: 65 Year
  Sex: Female

DRUGS (2)
  1. CARBOCISPLATIN 5AUC [Concomitant]
     Dosage: 5AUC
  2. PACLITAXEL. [Suspect]
     Active Substance: PACLITAXEL

REACTIONS (1)
  - Metastases to lung [Unknown]
